FAERS Safety Report 9637667 (Version 1)
Quarter: 2013Q4

REPORT INFORMATION
  Report Type: Spontaneous
  Country: AU (occurrence: AU)
  Receive Date: 20131022
  Receipt Date: 20131022
  Transmission Date: 20140711
  Serious: Yes (Death, Hospitalization)
  Sender: FDA-Public Use
  Company Number: AU-PFIZER INC-2013295252

PATIENT
  Sex: 0

DRUGS (1)
  1. ERAXIS [Suspect]
     Indication: SYSTEMIC CANDIDA

REACTIONS (1)
  - Multi-organ failure [Fatal]
